FAERS Safety Report 6384369-7 (Version None)
Quarter: 2009Q3

REPORT INFORMATION
  Report Type: 
  Country: None (occurrence: None)
  Receive Date: 20090929
  Receipt Date: 20090914
  Transmission Date: 20100115
  Serious: Yes (Other)
  Sender: FDA-Public Use
  Company Number: B0594852A

PATIENT
  Age: 12 Month
  Sex: Female

DRUGS (7)
  1. BUSULPHAN     (GENERIC)         (BUSULFAN) [Suspect]
     Indication: BONE MARROW TRANSPLANT
     Dosage: ORAL
     Route: 048
  2. MELPHALAN         TABLET (GENERIC) [Suspect]
  3. CYLOPHOSPHAMIDE       (FORMULATION UNKNOWN) (GENERIC) [Suspect]
     Indication: BONE MARROW TRANSPLANT
  4. ALEMTUZUMAB (FORMULATION UNKNOWN) (ALEMTUZUMAB) [Suspect]
     Indication: PROPHYLAXIS AGAINST TRANSPLANT REJECTION
  5. CYCLOSPORINE [Suspect]
     Indication: PROPHYLAXIS AGAINST TRANSPLANT REJECTION
  6. METHOTREXATE (FORMULATION UNKNOWN) (METHOTREXATE) [Suspect]
     Indication: PROPHYLAXIS AGAINST TRANSPLANT REJECTION
  7. ANTI-INFECTIVE MEDICATION (FORMULATION UNKNOWN) (ANTI-INFECTIVE MEDICA [Suspect]

REACTIONS (4)
  - ADENOVIRUS INFECTION [None]
  - PULMONARY HYPERTENSION [None]
  - RENAL IMPAIRMENT [None]
  - VIRAEMIA [None]
